FAERS Safety Report 5723431-6 (Version None)
Quarter: 2008Q2

REPORT INFORMATION
  Report Type: 
  Country: None (occurrence: None)
  Receive Date: 20080430
  Receipt Date: 20080424
  Transmission Date: 20081010
  Serious: Yes (Life-Threatening, Hospitalization)
  Sender: FDA-Public Use
  Company Number: PHRM2007FR01126

PATIENT
  Age: 13 Year
  Sex: Male
  Weight: 42 kg

DRUGS (23)
  1. SANDIMMUNE [Suspect]
     Indication: RENAL TRANSPLANT
     Dosage: 75 MG PER DAY
     Route: 042
     Dates: start: 20070414, end: 20070414
  2. SANDIMMUNE [Suspect]
     Dosage: 75 MG PER DAY
     Route: 042
     Dates: start: 20070325, end: 20070331
  3. SOLU-MEDROL [Concomitant]
     Indication: RENAL TRANSPLANT
     Dosage: 40 MG, BID
     Dates: start: 20070324
  4. SIMULECT [Suspect]
     Indication: RENAL TRANSPLANT
     Dosage: 1 DF, ONCE/SINGLE
     Route: 042
     Dates: start: 20070324, end: 20070324
  5. SUFENTA [Concomitant]
     Indication: ANAESTHESIA
     Dates: start: 20070324, end: 20070324
  6. NIMBEX [Concomitant]
     Indication: ANAESTHESIA
     Dates: start: 20070324, end: 20070324
  7. CLAFORAN [Concomitant]
     Dosage: 1.2 G, UNK
     Dates: start: 20070324, end: 20070324
  8. HYPNOVEL [Concomitant]
     Dosage: 5 MG, ONCE/SINGLE
     Dates: start: 20070324, end: 20070324
  9. IMUREL [Concomitant]
     Indication: RENAL TRANSPLANT
     Dosage: 75 MG DAILY
     Route: 048
     Dates: start: 20070324, end: 20070324
  10. IMUREL [Concomitant]
     Dosage: 55 MG DAILY
     Route: 048
     Dates: start: 20070325
  11. ZOVIRAX [Concomitant]
     Dosage: 180 MG, BID
     Dates: start: 20070324
  12. MORPHINE [Concomitant]
     Dosage: 0.5 MG PER DAY
     Route: 042
     Dates: start: 20070324
  13. ZANTAC [Concomitant]
     Dosage: 80 MG DAILY
     Route: 048
     Dates: start: 20070324
  14. PARACETAMOL [Concomitant]
     Dosage: 400 MG, QID
     Dates: start: 20070324
  15. DOPAMINE HCL [Concomitant]
     Dosage: 3 G/KG/MIN
     Dates: start: 20070324
  16. LASILIX [Concomitant]
     Dosage: 250 MG PER 24 H
     Dates: start: 20070324
  17. NEORAL [Concomitant]
     Indication: RENAL TRANSPLANT
     Route: 048
  18. NEORAL [Concomitant]
     Dosage: UNK, UNK
     Route: 048
     Dates: start: 20070401, end: 20070401
  19. CORTANCYL [Concomitant]
     Indication: RENAL TRANSPLANT
     Dosage: 35 MG, QD
  20. CELLCEPT [Concomitant]
     Indication: RENAL TRANSPLANT
     Dosage: 1 G, BID
     Route: 048
  21. CHRONADALATE [Concomitant]
     Dosage: 1 DF, BID
  22. SECTRAL [Concomitant]
     Dosage: 400 MG, QD
     Route: 048
  23. PHOSPHONEUROS [Concomitant]
     Dosage: 30 DF, TID
     Route: 048

REACTIONS (22)
  - AGITATION [None]
  - ALLERGY TEST POSITIVE [None]
  - ANAPHYLACTIC SHOCK [None]
  - ANURIA [None]
  - ARTERIOVENOUS FISTULA THROMBOSIS [None]
  - CENTRAL VENOUS PRESSURE DECREASED [None]
  - CHILLS [None]
  - CIRCULATORY COLLAPSE [None]
  - DEPRESSED LEVEL OF CONSCIOUSNESS [None]
  - DRUG HYPERSENSITIVITY [None]
  - DYSPNOEA [None]
  - FACE OEDEMA [None]
  - HYPOTENSION [None]
  - MALAISE [None]
  - OEDEMA MUCOSAL [None]
  - OEDEMA PERIPHERAL [None]
  - PRURITUS [None]
  - REACTION TO DRUG EXCIPIENTS [None]
  - TACHYCARDIA [None]
  - URTICARIA [None]
  - VOMITING [None]
  - WHEEZING [None]
